FAERS Safety Report 9190378 (Version 1)
Quarter: 2013Q1

REPORT INFORMATION
  Report Type: Spontaneous
  Country: US (occurrence: None)
  Receive Date: 20130325
  Receipt Date: 20130325
  Transmission Date: 20140127
  Serious: Yes (Life-Threatening)
  Sender: FDA-Public Use
  Company Number: None

PATIENT
  Age: 56 Year
  Sex: Female
  Weight: 61.69 kg

DRUGS (2)
  1. OMEPRAZOLE [Suspect]
     Dates: start: 20130128, end: 20130210
  2. AMOX/CLAV [Suspect]
     Dates: start: 20130131, end: 20130207

REACTIONS (6)
  - Diarrhoea [None]
  - Abdominal pain [None]
  - Clostridium difficile colitis [None]
  - Feeling abnormal [None]
  - Gastrointestinal disorder [None]
  - Oral candidiasis [None]
